FAERS Safety Report 12426707 (Version 1)
Quarter: 2016Q2

REPORT INFORMATION
  Report Type: Spontaneous
  Country: US (occurrence: US)
  Receive Date: 20160601
  Receipt Date: 20160601
  Transmission Date: 20160815
  Serious: Yes (Other)
  Sender: FDA-Public Use
  Company Number: US-PFIZER INC-2016277957

PATIENT
  Age: 37 Year
  Sex: Female

DRUGS (3)
  1. OXYMETAZOLINE [Suspect]
     Active Substance: OXYMETAZOLINE
     Indication: SEASONAL ALLERGY
     Dosage: UNK DAILY, MULTIPLE TIMES
  2. EPHEDRINE. [Suspect]
     Active Substance: EPHEDRINE
     Indication: SEASONAL ALLERGY
     Dosage: UNK DAILY, MULTIPLE TIMES
     Route: 048
  3. PRIMATENE MIST [Suspect]
     Active Substance: EPINEPHRINE
     Indication: SEASONAL ALLERGY
     Dosage: UNK DAILY, MULTIPLE TIMES

REACTIONS (3)
  - Cardiac failure [Recovered/Resolved]
  - Cardiomyopathy [Recovered/Resolved]
  - Quadriplegia [Recovered/Resolved]
